FAERS Safety Report 16110816 (Version 2)
Quarter: 2019Q3

REPORT INFORMATION
  Report Type: Spontaneous
  Country: JP (occurrence: JP)
  Receive Date: 20190325
  Receipt Date: 20190809
  Transmission Date: 20191004
  Serious: Yes (Hospitalization)
  Sender: FDA-Public Use
  Company Number: JP-ROCHE-2285312

PATIENT
  Age: 45 Year
  Sex: Female
  Weight: 45 kg

DRUGS (28)
  1. THYRADIN-S [Concomitant]
     Active Substance: LEVOTHYROXINE
     Route: 048
  2. BAKTAR [Concomitant]
     Active Substance: SULFAMETHOXAZOLE\TRIMETHOPRIM
     Route: 048
  3. PREDONINE [Concomitant]
     Active Substance: PREDNISOLONE
     Indication: B-CELL LYMPHOMA
     Route: 048
     Dates: start: 20111102, end: 20120126
  4. CALONAL [Concomitant]
     Active Substance: ACETAMINOPHEN
     Route: 048
     Dates: start: 20181205, end: 20181205
  5. DEXART [Concomitant]
     Active Substance: DEXAMETHASONE SODIUM PHOSPHATE
     Indication: PREMEDICATION
     Route: 041
     Dates: start: 20181205, end: 20181205
  6. TREAKISYM [Concomitant]
     Active Substance: BENDAMUSTINE HYDROCHLORIDE
     Indication: B-CELL LYMPHOMA
     Route: 041
     Dates: start: 20120227, end: 20120716
  7. RITUXAN [Suspect]
     Active Substance: RITUXIMAB
     Route: 041
     Dates: start: 20111102, end: 20120126
  8. RITUXAN [Suspect]
     Active Substance: RITUXIMAB
     Route: 041
  9. GAZYVA [Suspect]
     Active Substance: OBINUTUZUMAB
     Route: 042
  10. RESTAMIN [DIPHENHYDRAMINE] [Concomitant]
     Indication: PREMEDICATION
     Route: 048
     Dates: start: 20181126, end: 20181126
  11. RESTAMIN [DIPHENHYDRAMINE] [Concomitant]
     Route: 048
     Dates: start: 20181205, end: 20181205
  12. CALONAL [Concomitant]
     Active Substance: ACETAMINOPHEN
     Route: 048
     Dates: start: 20181126, end: 20181205
  13. METHYLPREDNISOLONE SODIUM SUCCINATE. [Concomitant]
     Active Substance: METHYLPREDNISOLONE SODIUM SUCCINATE
     Indication: B-CELL LYMPHOMA
     Route: 041
     Dates: start: 20180727, end: 20180816
  14. CYCLOPHOSPHAMIDE MONOHYDRATE [Concomitant]
     Active Substance: CYCLOPHOSPHAMIDE
     Indication: B-CELL LYMPHOMA
     Route: 041
     Dates: start: 20111102, end: 20120126
  15. ETOPOSIDE. [Concomitant]
     Active Substance: ETOPOSIDE
     Indication: B-CELL LYMPHOMA
     Route: 041
     Dates: start: 20180727, end: 20180816
  16. RITUXAN [Suspect]
     Active Substance: RITUXIMAB
     Route: 041
     Dates: start: 20180727, end: 20180816
  17. CISPLATIN. [Concomitant]
     Active Substance: CISPLATIN
     Indication: B-CELL LYMPHOMA
     Route: 041
  18. CALONAL [Concomitant]
     Active Substance: ACETAMINOPHEN
     Indication: PREMEDICATION
     Route: 048
     Dates: start: 20181126, end: 20181126
  19. VINCRISTINE SULFATE. [Concomitant]
     Active Substance: VINCRISTINE SULFATE
     Indication: B-CELL LYMPHOMA
     Route: 042
     Dates: start: 20111102, end: 20120126
  20. RITUXAN [Suspect]
     Active Substance: RITUXIMAB
     Indication: B-CELL LYMPHOMA
     Route: 041
  21. RITUXAN [Suspect]
     Active Substance: RITUXIMAB
     Route: 041
     Dates: start: 20120705, end: 20170712
  22. GAZYVA [Suspect]
     Active Substance: OBINUTUZUMAB
     Indication: B-CELL LYMPHOMA
     Route: 042
     Dates: start: 20181126
  23. PREDONINE [Concomitant]
     Active Substance: PREDNISOLONE
     Route: 048
     Dates: start: 20181126, end: 20181126
  24. CYTARABINE. [Concomitant]
     Active Substance: CYTARABINE
     Indication: B-CELL LYMPHOMA
     Route: 041
     Dates: start: 20180727, end: 20180816
  25. RITUXAN [Suspect]
     Active Substance: RITUXIMAB
     Route: 041
     Dates: start: 20120227, end: 20120716
  26. ACICLOVIR [Concomitant]
     Active Substance: ACYCLOVIR
     Route: 048
  27. ALOXI [Concomitant]
     Active Substance: PALONOSETRON HYDROCHLORIDE
     Route: 041
  28. DOXORUBICIN HYDROCHLORIDE. [Concomitant]
     Active Substance: DOXORUBICIN HYDROCHLORIDE
     Indication: B-CELL LYMPHOMA
     Route: 041
     Dates: start: 20111102, end: 20120126

REACTIONS (3)
  - Infusion related reaction [Recovered/Resolved]
  - Infusion related reaction [Unknown]
  - Rash [Unknown]

NARRATIVE: CASE EVENT DATE: 20181126
